FAERS Safety Report 5515197-X (Version None)
Quarter: 2007Q4

REPORT INFORMATION
  Report Type: 
  Country: None (occurrence: None)
  Receive Date: 20071113
  Receipt Date: 20070205
  Transmission Date: 20080405
  Serious: No
  Sender: FDA-Public Use
  Company Number: A0638361A

PATIENT
  Age: 79 Year
  Sex: Male

DRUGS (4)
  1. COREG [Suspect]
     Indication: MYOCARDIAL INFARCTION
     Dosage: 6.25MG TWICE PER DAY
     Route: 048
     Dates: start: 20061101
  2. LIPITOR [Concomitant]
  3. DIOVAN [Concomitant]
  4. GLIPIZIDE [Concomitant]

REACTIONS (4)
  - ASTHENIA [None]
  - DIARRHOEA [None]
  - DYSPNOEA [None]
  - FATIGUE [None]
